FAERS Safety Report 4726405-7 (Version None)
Quarter: 2005Q3

REPORT INFORMATION
  Report Type: 
  Country: None (occurrence: None)
  Receive Date: 20050726
  Receipt Date: 20050428
  Transmission Date: 20060218
  Serious: No
  Sender: FDA-Public Use
  Company Number: REM_00113_2005

PATIENT
  Age: 44 Year
  Sex: Female
  Weight: 68 kg

DRUGS (10)
  1. REMODULIN [Suspect]
     Indication: PULMONARY HYPERTENSION
     Dosage: 10 NG/KG/MIN CONTINUOUS SC
     Route: 058
     Dates: start: 20050328, end: 20050414
  2. REMODULIN [Suspect]
     Indication: PULMONARY HYPERTENSION
     Dosage: 10 NG/KG/MIN CONTINUOUS SC
     Route: 058
     Dates: start: 20050414
  3. TRACLEER [Concomitant]
  4. WARFARIN [Concomitant]
  5. LASIX [Concomitant]
  6. ZESTRIL [Concomitant]
  7. FAMOTIDINE [Concomitant]
  8. POTASSIUM CHLORIDE [Concomitant]
  9. NASAREL [Concomitant]
  10. PLO GEL D [Concomitant]

REACTIONS (7)
  - INFECTION [None]
  - INFUSION SITE PRURITUS [None]
  - LOCALISED OEDEMA [None]
  - OEDEMA PERIPHERAL [None]
  - PRURITUS GENERALISED [None]
  - RASH GENERALISED [None]
  - SKIN LESION [None]
